FAERS Safety Report 5168672-4 (Version None)
Quarter: 2006Q4

REPORT INFORMATION
  Report Type: 
  Country: None (occurrence: None)
  Receive Date: 20061211
  Receipt Date: 20061201
  Transmission Date: 20070319
  Serious: Yes (Other)
  Sender: FDA-Public Use
  Company Number: PHNR2006AU01659

PATIENT
  Age: 35 Year
  Sex: Female

DRUGS (1)
  1. CLOZARIL [Suspect]
     Dosage: 50 MG DAILY
     Route: 048
     Dates: start: 20061123, end: 20061130

REACTIONS (10)
  - AGITATION [None]
  - ANXIETY [None]
  - ASTHENIA [None]
  - DIZZINESS [None]
  - FATIGUE [None]
  - MUSCULAR WEAKNESS [None]
  - RESTLESSNESS [None]
  - SEDATION [None]
  - SYNCOPE [None]
  - TACHYCARDIA [None]
